FAERS Safety Report 4655039-8 (Version None)
Quarter: 2005Q2

REPORT INFORMATION
  Report Type: 
  Country: None (occurrence: None)
  Receive Date: 20050504
  Receipt Date: 20050420
  Transmission Date: 20051028
  Serious: Yes (Hospitalization, Other)
  Sender: FDA-Public Use
  Company Number: 2005063455

PATIENT
  Age: 46 Year
  Sex: Female
  Weight: 99.7913 kg

DRUGS (9)
  1. BEXTRA [Suspect]
     Indication: RHEUMATOID ARTHRITIS
     Dosage: 20 MG (20 MG, 1IN 1 D), ORAL
     Route: 048
     Dates: start: 20040101, end: 20050408
  2. CELEBREX [Suspect]
     Indication: RHEUMATOID ARTHRITIS
     Dates: end: 20040101
  3. BISOPROLOL FUMARATE AND HYDROCHLOROTHIAZIDE [Concomitant]
  4. LOTREL [Concomitant]
  5. ALLOPURINOL [Suspect]
     Indication: ILL-DEFINED DISORDER
     Dates: end: 20050101
  6. CLAVULIN (AMOXICILLIN TRIHYDRATE, CLAVULANATE POTASSIUM) [Suspect]
     Indication: ILL-DEFINED DISORDER
     Dates: end: 20050101
  7. FENOFIBRATE [Suspect]
     Indication: ILL-DEFINED DISORDER
     Dates: end: 20050301
  8. GLIPIZIDE [Concomitant]
  9. HYDROXYCHLOROQUINE PHOSPHATE (HYDROXYCHLOROQUINE PHOSPHATE) [Concomitant]

REACTIONS (11)
  - BLOOD CALCIUM ABNORMAL [None]
  - EAR INFECTION [None]
  - FATIGUE [None]
  - INFLUENZA LIKE ILLNESS [None]
  - JOINT INJURY [None]
  - ORAL SOFT TISSUE DISORDER [None]
  - PSORIASIS [None]
  - RASH PRURITIC [None]
  - RENAL FAILURE [None]
  - SINUSITIS [None]
  - SUDDEN ONSET OF SLEEP [None]
